FAERS Safety Report 6731944-3 (Version None)
Quarter: 2010Q2

REPORT INFORMATION
  Report Type: 
  Country: None (occurrence: None)
  Receive Date: 20100519
  Receipt Date: 20100510
  Transmission Date: 20101027
  Serious: Yes (Hospitalization, Other)
  Sender: FDA-Public Use
  Company Number: US-AMGEN-QUU407786

PATIENT
  Sex: Female
  Weight: 74 kg

DRUGS (11)
  1. NPLATE [Suspect]
     Indication: IDIOPATHIC THROMBOCYTOPENIC PURPURA
     Route: 058
     Dates: start: 20090423, end: 20090615
  2. CORTICOSTEROIDS [Concomitant]
     Dates: start: 20051118
  3. DANAZOL [Concomitant]
     Dates: start: 20060123
  4. CYCLOSPORINE [Concomitant]
     Dates: start: 20080820
  5. CALCIUM WITH VITAMIN D [Concomitant]
  6. LASIX [Concomitant]
  7. SINEMET [Concomitant]
  8. SYNTHROID [Concomitant]
  9. COREG [Concomitant]
  10. UNSPECIFIED MEDICATION [Concomitant]
  11. PREDNISONE [Concomitant]

REACTIONS (2)
  - THROMBOCYTOPENIA [None]
  - TRANSIENT ISCHAEMIC ATTACK [None]
